FAERS Safety Report 25584900 (Version 1)
Quarter: 2025Q3

REPORT INFORMATION
  Report Type: Spontaneous
  Country: EU (occurrence: EU)
  Receive Date: 20250721
  Receipt Date: 20250721
  Transmission Date: 20251020
  Serious: Yes (Other)
  Sender: MYLAN
  Company Number: EU-MYLANLABS-2025M1059405

PATIENT
  Sex: Female

DRUGS (28)
  1. METHOTREXATE [Suspect]
     Active Substance: METHOTREXATE
     Indication: Systemic lupus erythematosus
  2. METHOTREXATE [Suspect]
     Active Substance: METHOTREXATE
     Route: 065
  3. METHOTREXATE [Suspect]
     Active Substance: METHOTREXATE
     Route: 065
  4. METHOTREXATE [Suspect]
     Active Substance: METHOTREXATE
  5. LEFLUNOMIDE [Suspect]
     Active Substance: LEFLUNOMIDE
     Indication: Systemic lupus erythematosus
  6. LEFLUNOMIDE [Suspect]
     Active Substance: LEFLUNOMIDE
     Route: 065
  7. LEFLUNOMIDE [Suspect]
     Active Substance: LEFLUNOMIDE
     Route: 065
  8. LEFLUNOMIDE [Suspect]
     Active Substance: LEFLUNOMIDE
  9. MYCOPHENOLATE MOFETIL [Suspect]
     Active Substance: MYCOPHENOLATE MOFETIL
     Indication: Systemic lupus erythematosus
  10. MYCOPHENOLATE MOFETIL [Suspect]
     Active Substance: MYCOPHENOLATE MOFETIL
     Route: 065
  11. MYCOPHENOLATE MOFETIL [Suspect]
     Active Substance: MYCOPHENOLATE MOFETIL
     Route: 065
  12. MYCOPHENOLATE MOFETIL [Suspect]
     Active Substance: MYCOPHENOLATE MOFETIL
  13. BELIMUMAB [Suspect]
     Active Substance: BELIMUMAB
     Indication: Systemic lupus erythematosus
  14. BELIMUMAB [Suspect]
     Active Substance: BELIMUMAB
     Route: 065
  15. BELIMUMAB [Suspect]
     Active Substance: BELIMUMAB
     Route: 065
  16. BELIMUMAB [Suspect]
     Active Substance: BELIMUMAB
  17. RITUXIMAB [Suspect]
     Active Substance: RITUXIMAB
     Indication: Systemic lupus erythematosus
  18. RITUXIMAB [Suspect]
     Active Substance: RITUXIMAB
     Route: 065
  19. RITUXIMAB [Suspect]
     Active Substance: RITUXIMAB
     Route: 065
  20. RITUXIMAB [Suspect]
     Active Substance: RITUXIMAB
  21. ANIFROLUMAB [Suspect]
     Active Substance: ANIFROLUMAB
     Indication: Systemic lupus erythematosus
  22. ANIFROLUMAB [Suspect]
     Active Substance: ANIFROLUMAB
     Route: 065
  23. ANIFROLUMAB [Suspect]
     Active Substance: ANIFROLUMAB
     Route: 065
  24. ANIFROLUMAB [Suspect]
     Active Substance: ANIFROLUMAB
  25. BARICITINIB [Suspect]
     Active Substance: BARICITINIB
     Indication: Systemic lupus erythematosus
  26. BARICITINIB [Suspect]
     Active Substance: BARICITINIB
     Route: 065
  27. BARICITINIB [Suspect]
     Active Substance: BARICITINIB
     Route: 065
  28. BARICITINIB [Suspect]
     Active Substance: BARICITINIB

REACTIONS (2)
  - Treatment failure [Unknown]
  - Off label use [Unknown]
